FAERS Safety Report 12484780 (Version 1)
Quarter: 2016Q2

REPORT INFORMATION
  Report Type: Spontaneous
  Country: US (occurrence: None)
  Receive Date: 20160620
  Receipt Date: 20160620
  Transmission Date: 20160815
  Serious: No
  Sender: FDA-Public Use
  Company Number: None

PATIENT
  Age: 58 Year
  Sex: Female

DRUGS (1)
  1. PRAVASTATIN [Suspect]
     Active Substance: PRAVASTATIN\PRAVASTATIN SODIUM
     Indication: BLOOD CHOLESTEROL INCREASED
     Dosage: ABOUT 3 MONTHS 40MG DAILY BY MOUTH
     Route: 048

REACTIONS (2)
  - Therapy change [None]
  - Muscle spasms [None]

NARRATIVE: CASE EVENT DATE: 20160615
